FAERS Safety Report 23493226 (Version 1)
Quarter: 2024Q1

REPORT INFORMATION
  Report Type: Report from Study
  Country: LB (occurrence: LB)
  Receive Date: 20240207
  Receipt Date: 20240207
  Transmission Date: 20240410
  Serious: Yes (Hospitalization)
  Sender: FDA-Public Use
  Company Number: LB-AMGEN-USASL2024020289

PATIENT
  Age: 20 Year
  Sex: Male
  Weight: 82 kg

DRUGS (4)
  1. BLINCYTO [Suspect]
     Active Substance: BLINATUMOMAB
     Indication: Leukaemia
     Dosage: UNK, 11 DAYS TREATMENT
     Route: 042
     Dates: start: 202312, end: 20231231
  2. BLINCYTO [Suspect]
     Active Substance: BLINATUMOMAB
     Dosage: UNK, 1ST CYCLE AT THE HOSPITAL
     Route: 042
     Dates: start: 20240129
  3. PANADOL [Concomitant]
     Active Substance: ACETAMINOPHEN
  4. CORTISONE [Concomitant]
     Active Substance: CORTISONE

REACTIONS (7)
  - Hallucination [Recovering/Resolving]
  - Myalgia [Recovering/Resolving]
  - Headache [Recovered/Resolved]
  - Loss of consciousness [Recovering/Resolving]
  - Tremor [Recovering/Resolving]
  - Pyrexia [Recovered/Resolved]
  - Off label use [Unknown]

NARRATIVE: CASE EVENT DATE: 20231201
